FAERS Safety Report 23596137 (Version 1)
Quarter: 2024Q1

REPORT INFORMATION
  Report Type: Spontaneous
  Country: US (occurrence: None)
  Receive Date: 20240304
  Receipt Date: 20240304
  Transmission Date: 20240410
  Serious: Yes (Other)
  Sender: FDA-Public Use
  Company Number: None

PATIENT
  Age: 58 Year
  Sex: Male
  Weight: 90.72 kg

DRUGS (2)
  1. DOXYCYCLINE [Suspect]
     Active Substance: DOXYCYCLINE
     Dosage: FREQUENCY : DAILY;?
     Route: 048
     Dates: start: 20240302, end: 20240302
  2. BACTRIM [Suspect]
     Active Substance: SULFAMETHOXAZOLE\TRIMETHOPRIM

REACTIONS (6)
  - Penile dermatitis [None]
  - Burning sensation [None]
  - Penile pain [None]
  - Penile discharge [None]
  - Penile swelling [None]
  - Therapy cessation [None]

NARRATIVE: CASE EVENT DATE: 20240302
